FAERS Safety Report 8840058 (Version 2)
Quarter: 2012Q4

REPORT INFORMATION
  Report Type: 
  Country: US (occurrence: US)
  Receive Date: 20121015
  Receipt Date: 20121108
  Transmission Date: 20130627
  Serious: No
  Sender: FDA-Public Use
  Company Number: US-PFIZER INC-2012253307

PATIENT
  Age: 83 Year
  Sex: Male
  Weight: 92.97 kg

DRUGS (12)
  1. TIKOSYN [Suspect]
     Indication: ATRIAL FIBRILLATION
     Dosage: 2.5 mg, 2x/day
     Dates: start: 201208
  2. ACETYLSALICYLIC ACID [Concomitant]
     Indication: HEART DISORDER
     Dosage: 81 mg, alternate day
  3. WARFARIN SODIUM [Concomitant]
     Indication: HEART DISORDER
     Dosage: 3 mg, Sun, Tues, Wed, Fri
  4. WARFARIN SODIUM [Concomitant]
     Dosage: 6 mg, Mon, Tues, Sat
  5. FOLIC ACID [Concomitant]
     Indication: HEART DISORDER
     Dosage: UNK
  6. LASIX [Concomitant]
     Indication: HEART DISORDER
     Dosage: UNK
  7. ISOSORBIDE [Concomitant]
     Indication: HEART DISORDER
     Dosage: UNK
  8. MAGNESIUM OXIDE [Concomitant]
     Indication: HEART DISORDER
     Dosage: UNK
  9. SPIRONOLACTONE [Concomitant]
     Indication: HEART DISORDER
     Dosage: UNK
  10. OMEPRAZOLE [Concomitant]
     Indication: HEART DISORDER
     Dosage: UNK
  11. JANUVIA [Concomitant]
     Indication: DIABETES
     Dosage: UNK
  12. METOPROLOL [Concomitant]
     Indication: HEART DISORDER
     Dosage: UNK

REACTIONS (1)
  - Cough [Not Recovered/Not Resolved]
